FAERS Safety Report 8249345 (Version 3)
Quarter: 2015Q4

REPORT INFORMATION
  Report Type: Spontaneous
  Country: NL (occurrence: NL)
  Receive Date: 20111117
  Receipt Date: 20151203
  Transmission Date: 20160305
  Serious: Yes (Death, Life-Threatening, Hospitalization, Other)
  Sender: FDA-Public Use
  Company Number: NL-AMGEN-NLDSP2011059541

PATIENT
  Age: 58 Year
  Sex: Female

DRUGS (6)
  1. ENBREL [Suspect]
     Active Substance: ETANERCEPT
     Dosage: 25 MG, UNK
     Route: 065
     Dates: start: 2011
  2. ZANTAC [Concomitant]
     Active Substance: RANITIDINE HYDROCHLORIDE
     Dosage: 150 MG, 1X/DAY
  3. DIDROKIT                           /01103501/ [Concomitant]
     Indication: RHEUMATOID ARTHRITIS
     Dosage: UNK
  4. PREDNISON [Concomitant]
     Active Substance: PREDNISONE
     Indication: RHEUMATOID ARTHRITIS
     Dosage: 7.5 MG, 1X/DAY
  5. METOPROLOL TARTRATE. [Concomitant]
     Active Substance: METOPROLOL TARTRATE
     Dosage: 100 MG, 1X/DAY
  6. ENBREL [Suspect]
     Active Substance: ETANERCEPT
     Indication: RHEUMATOID ARTHRITIS
     Dosage: 25 MG, WEEKLY
     Route: 058
     Dates: start: 2009, end: 20111025

REACTIONS (2)
  - Pancreatic carcinoma [Unknown]
  - Pancreatic carcinoma recurrent [Fatal]

NARRATIVE: CASE EVENT DATE: 20111025
